FAERS Safety Report 9882051 (Version 2)
Quarter: 2014Q1

REPORT INFORMATION
  Report Type: Report from Study
  Country: ES (occurrence: ES)
  Receive Date: 20140207
  Receipt Date: 20140219
  Transmission Date: 20141002
  Serious: Yes (Hospitalization)
  Sender: FDA-Public Use
  Company Number: ES-GLAXOSMITHKLINE-B0966431A

PATIENT
  Age: 46 Year
  Sex: Female
  Weight: 52 kg

DRUGS (4)
  1. BELIMUMAB [Suspect]
     Indication: SYSTEMIC LUPUS ERYTHEMATOSUS
     Dates: start: 20130313
  2. PREDNISONE [Concomitant]
     Indication: SYSTEMIC LUPUS ERYTHEMATOSUS
     Dosage: 20MG PER DAY
     Route: 048
     Dates: start: 20130313
  3. HYDROXYCHLOROQUINE [Concomitant]
     Indication: SYSTEMIC LUPUS ERYTHEMATOSUS
     Dosage: 300MG PER DAY
     Route: 048
     Dates: start: 20121126
  4. NAPROXENO [Concomitant]
     Indication: SYSTEMIC LUPUS ERYTHEMATOSUS
     Dosage: 500MG PER DAY
     Route: 048
     Dates: start: 20121126

REACTIONS (1)
  - Pelvic inflammatory disease [Recovered/Resolved]
